FAERS Safety Report 7609735-0 (Version None)
Quarter: 2011Q3

REPORT INFORMATION
  Report Type: 
  Country: None (occurrence: None)
  Receive Date: 20110714
  Receipt Date: 20110707
  Transmission Date: 20111222
  Serious: Yes (Other)
  Sender: FDA-Public Use
  Company Number: US-CEPHALON-2011000952

PATIENT
  Sex: Female

DRUGS (1)
  1. ACTIQ [Suspect]
     Route: 002
     Dates: start: 20040323

REACTIONS (4)
  - TOOTH LOSS [None]
  - DYSARTHRIA [None]
  - STRESS [None]
  - HYPOAESTHESIA [None]
